FAERS Safety Report 22345813 (Version 1)
Quarter: 2023Q2

REPORT INFORMATION
  Report Type: Report from Study
  Country: US (occurrence: None)
  Receive Date: 20230519
  Receipt Date: 20230519
  Transmission Date: 20230721
  Serious: Yes (Other)
  Sender: FDA-Public Use
  Company Number: 2023A110347

PATIENT

DRUGS (1)
  1. SYMBICORT [Suspect]
     Active Substance: BUDESONIDE\FORMOTEROL FUMARATE DIHYDRATE
     Route: 055

REACTIONS (10)
  - Pulmonary oedema [Unknown]
  - COVID-19 [Unknown]
  - Dysstasia [Unknown]
  - Dyspnoea [Unknown]
  - Frustration tolerance decreased [Unknown]
  - Dizziness [Unknown]
  - Fall [Unknown]
  - Head injury [Unknown]
  - Tearfulness [Unknown]
  - Product use issue [Unknown]
